FAERS Safety Report 11184959 (Version 6)
Quarter: 2018Q1

REPORT INFORMATION
  Report Type: Spontaneous
  Country: US (occurrence: US)
  Receive Date: 20150612
  Receipt Date: 20180301
  Transmission Date: 20180508
  Serious: Yes (Hospitalization, Disabling, Other)
  Sender: FDA-Public Use
  Company Number: US-ENDO PHARMACEUTICALS INC.-201411062

PATIENT
  Age: 57 Year
  Sex: Male
  Weight: 75.28 kg

DRUGS (1)
  1. TESTIM [Suspect]
     Active Substance: TESTOSTERONE
     Indication: ANDROGEN REPLACEMENT THERAPY
     Dosage: 50 MG, DAILY
     Route: 062
     Dates: start: 20100113, end: 20100321

REACTIONS (24)
  - Coronary artery disease [Not Recovered/Not Resolved]
  - Atrial fibrillation [Recovered/Resolved]
  - Pulmonary mass [Unknown]
  - Fatigue [Unknown]
  - Inability to afford medication [Unknown]
  - Insomnia [Unknown]
  - Mental disorder [Not Recovered/Not Resolved]
  - Fear [Unknown]
  - Cognitive disorder [Unknown]
  - Discomfort [Unknown]
  - Anxiety [Unknown]
  - Dizziness postural [Unknown]
  - Disturbance in attention [Unknown]
  - Social problem [Unknown]
  - Deafness [Unknown]
  - Decreased interest [Unknown]
  - Acute myocardial infarction [Not Recovered/Not Resolved]
  - Peripheral vascular disorder [Unknown]
  - Pericarditis [Unknown]
  - Hypotension [Recovered/Resolved]
  - Pulmonary oedema [Recovered/Resolved]
  - Pneumonia staphylococcal [Unknown]
  - Impaired work ability [Not Recovered/Not Resolved]
  - Left ventricular failure [Unknown]

NARRATIVE: CASE EVENT DATE: 2010
